FAERS Safety Report 9980027 (Version 1)
Quarter: 2014Q1

REPORT INFORMATION
  Report Type: Report from Study
  Country: US (occurrence: US)
  Receive Date: 20140307
  Receipt Date: 20140307
  Transmission Date: 20141002
  Serious: No
  Sender: FDA-Public Use
  Company Number: US-ABBVIE-13P-163-1176573-00

PATIENT
  Age: 55 Year
  Sex: Female

DRUGS (11)
  1. HUMIRA [Suspect]
     Indication: RHEUMATOID ARTHRITIS
     Dates: start: 20131017
  2. METHOTREXATE [Concomitant]
     Indication: RHEUMATOID ARTHRITIS
     Dosage: EVERY FRIDAY
  3. PREDNISONE [Concomitant]
     Indication: RHEUMATOID ARTHRITIS
  4. LEVOXINE [Concomitant]
     Indication: HYPOTHYROIDISM
  5. LEVOXACIN [Concomitant]
     Indication: HYPOTHYROIDISM
  6. ESTRADIOL [Concomitant]
     Indication: PRODUCT USED FOR UNKNOWN INDICATION
  7. NORCO [Concomitant]
     Indication: PAIN
  8. PRILOSEC [Concomitant]
     Indication: GASTRIC DISORDER
  9. DICLOFENAC [Concomitant]
     Indication: RHEUMATOID ARTHRITIS
  10. BUPROPION [Concomitant]
     Indication: DEPRESSION
     Dates: start: 201311
  11. BUPROPION [Concomitant]
     Indication: SMOKING CESSATION THERAPY

REACTIONS (3)
  - Joint stiffness [Not Recovered/Not Resolved]
  - Depression [Not Recovered/Not Resolved]
  - Drug ineffective [Unknown]
